FAERS Safety Report 17064957 (Version 1)
Quarter: 2019Q4

REPORT INFORMATION
  Report Type: Spontaneous
  Country: FR (occurrence: FR)
  Receive Date: 20191122
  Receipt Date: 20191122
  Transmission Date: 20200122
  Serious: Yes (Death)
  Sender: FDA-Public Use
  Company Number: FR-ASTRAZENECA-2019SF65792

PATIENT
  Age: 71 Year
  Sex: Female
  Weight: 59 kg

DRUGS (5)
  1. HOMEOPATHY [Concomitant]
     Active Substance: UNSPECIFIED INGREDIENT
     Route: 065
  2. AUBEPINE [Concomitant]
     Route: 065
     Dates: end: 20190828
  3. INEXIUM [Suspect]
     Active Substance: ESOMEPRAZOLE
     Indication: GASTRITIS
     Route: 048
     Dates: start: 201905, end: 20190828
  4. EXACOR [Suspect]
     Active Substance: CIFENLINE SUCCINATE
     Indication: ARRHYTHMIA
     Route: 048
     Dates: start: 201905, end: 20190828
  5. RESITUNE [Concomitant]
     Active Substance: ASPIRIN
     Route: 065
     Dates: end: 20190828

REACTIONS (2)
  - Liver transplant [Fatal]
  - Hepatitis fulminant [Fatal]

NARRATIVE: CASE EVENT DATE: 20190826
